FAERS Safety Report 21905409 (Version 2)
Quarter: 2023Q4

REPORT INFORMATION
  Report Type: Spontaneous
  Country: US (occurrence: US)
  Receive Date: 20230124
  Receipt Date: 20231117
  Transmission Date: 20240109
  Serious: No
  Sender: FDA-Public Use
  Company Number: US-Blueprint Medicines Corporation-737

PATIENT
  Sex: Male
  Weight: 91.4 kg

DRUGS (16)
  1. AYVAKIT [Suspect]
     Active Substance: AVAPRITINIB
     Indication: Systemic mastocytosis
     Route: 048
     Dates: start: 20211026
  2. AYVAKIT [Suspect]
     Active Substance: AVAPRITINIB
     Route: 048
  3. Ecotrin/Aspirin [Concomitant]
     Indication: Product used for unknown indication
     Route: 048
  4. viactiv [Concomitant]
     Indication: Product used for unknown indication
     Route: 048
  5. carboxymethylcellul-glycerin [Concomitant]
     Indication: Product used for unknown indication
     Route: 047
  6. CVS B12 Gummies [Concomitant]
     Indication: Product used for unknown indication
     Route: 048
  7. FLEXERIL [Concomitant]
     Active Substance: CYCLOBENZAPRINE HYDROCHLORIDE
     Indication: Muscle spasms
     Route: 048
  8. ALLEGRA [Concomitant]
     Active Substance: FEXOFENADINE HYDROCHLORIDE
     Indication: Product used for unknown indication
     Route: 048
  9. AVAPRO [Concomitant]
     Active Substance: IRBESARTAN
     Indication: Product used for unknown indication
     Route: 048
  10. CULTURELLE [Concomitant]
     Active Substance: LACTOBACILLUS RHAMNOSUS
     Indication: Product used for unknown indication
     Route: 048
  11. TOPROL XL [Concomitant]
     Active Substance: METOPROLOL SUCCINATE
     Indication: Hypertension
     Route: 048
  12. alive mens [Concomitant]
     Indication: Product used for unknown indication
     Route: 048
  13. PROTONIX [Concomitant]
     Active Substance: PANTOPRAZOLE SODIUM
     Indication: Product used for unknown indication
     Route: 048
  14. SENOKOT [Concomitant]
     Active Substance: SENNOSIDES
     Indication: Product used for unknown indication
     Route: 048
  15. CIALIS [Concomitant]
     Active Substance: TADALAFIL
     Indication: Product used for unknown indication
     Route: 048
  16. KENALOG [Concomitant]
     Active Substance: TRIAMCINOLONE ACETONIDE
     Indication: Product used for unknown indication
     Route: 061

REACTIONS (6)
  - Altered state of consciousness [Unknown]
  - Pain [Unknown]
  - Procedural pain [Recovering/Resolving]
  - Discomfort [Recovering/Resolving]
  - Splenomegaly [Recovering/Resolving]
  - Product dose omission issue [Unknown]
